FAERS Safety Report 17557530 (Version 1)
Quarter: 2020Q1

REPORT INFORMATION
  Report Type: Spontaneous
  Country: FR (occurrence: FR)
  Receive Date: 20200318
  Receipt Date: 20200318
  Transmission Date: 20200409
  Serious: Yes (Hospitalization)
  Sender: FDA-Public Use
  Company Number: FR-TEVA-2020-FR-1202910

PATIENT
  Age: 73 Year
  Sex: Female

DRUGS (14)
  1. DOLIPRANE [Concomitant]
     Active Substance: ACETAMINOPHEN
     Route: 048
  2. SPASFON [Concomitant]
     Route: 048
     Dates: start: 20200205
  3. INEGY 10 MG/20 MG, COMPRIME [Concomitant]
     Active Substance: EZETIMIBE\SIMVASTATIN
     Dosage: 1 DOSAGE FORM
     Route: 048
  4. LANSOYL [Concomitant]
     Active Substance: MINERAL OIL
     Route: 048
     Dates: start: 20200205
  5. NEFOPAM (CHLORHYDRATE DE) [Concomitant]
     Active Substance: NEFOPAM HYDROCHLORIDE
     Route: 048
     Dates: start: 20200205
  6. BIPRETERAX 5 MG/1,25 MG, COMPRIME PELLICULE [Suspect]
     Active Substance: INDAPAMIDE\PERINDOPRIL ERBUMINE
     Indication: HYPERTENSION
     Dosage: 5MG/1.25MG 1X/J, 1 DOSAGE FORMS
     Route: 048
     Dates: start: 201701, end: 20200217
  7. FORLAX [Concomitant]
     Active Substance: POLYETHYLENE GLYCOL 4000
     Route: 048
     Dates: start: 20200205
  8. SERESTA [Concomitant]
     Active Substance: OXAZEPAM
     Dosage: 10 MG
     Route: 048
     Dates: start: 20200214
  9. INNOHEP [Concomitant]
     Active Substance: TINZAPARIN SODIUM
     Dosage: 4500 IU
     Route: 058
     Dates: start: 20200205
  10. TRIMEBUTINE [Concomitant]
     Active Substance: TRIMEBUTINE
     Dosage: 300 MG
     Route: 048
     Dates: start: 20200205
  11. ESOMEPRAZOLE. [Concomitant]
     Active Substance: ESOMEPRAZOLE MAGNESIUM
     Dosage: 40 MG
     Route: 048
     Dates: start: 20200205
  12. ALPRAZOLAM. [Suspect]
     Active Substance: ALPRAZOLAM
     Indication: ANXIETY DISORDER
     Dosage: 2 MG
     Route: 048
     Dates: start: 20200214, end: 20200217
  13. PAROXETINE (CHLORHYDRATE DE) HEMIHYDRATE [Suspect]
     Active Substance: PAROXETINE HYDROCHLORIDE
     Indication: ANXIETY DISORDER
     Dosage: 20 MG
     Route: 048
     Dates: start: 20200214, end: 20200217
  14. COVERAM [Concomitant]
     Active Substance: AMLODIPINE\PERINDOPRIL
     Dosage: 5 MG/5 MG, 1 DOSAGE FORMS
     Route: 048

REACTIONS (1)
  - Hyponatraemia [Recovered/Resolved]

NARRATIVE: CASE EVENT DATE: 20200216
